FAERS Safety Report 10856173 (Version 1)
Quarter: 2015Q1

REPORT INFORMATION
  Report Type: Spontaneous
  Country: US (occurrence: US)
  Receive Date: 20150222
  Receipt Date: 20150222
  Transmission Date: 20150721
  Serious: No
  Sender: FDA-Public Use
  Company Number: US-ALLERGAN-1419611US

PATIENT
  Age: 50 Year
  Sex: Female

DRUGS (4)
  1. BOTOX COSMETIC [Suspect]
     Active Substance: ONABOTULINUMTOXINA
     Indication: SKIN WRINKLING
     Dosage: 7 UNITS, SINGLE
     Route: 030
     Dates: start: 20140829, end: 20140829
  2. RADIESSE [Suspect]
     Active Substance: TRIBASIC CALCIUM PHOSPHATE
     Indication: PRODUCT USED FOR UNKNOWN INDICATION
     Dosage: 1.5 ML, SINGLE
     Dates: start: 20140829, end: 20140829
  3. LOTREL [Suspect]
     Active Substance: AMLODIPINE BESYLATE\BENAZEPRIL HYDROCHLORIDE
     Indication: PRODUCT USED FOR UNKNOWN INDICATION
     Dosage: 1 ML, SINGLE
     Dates: start: 20140829, end: 20140829
  4. BOTOX COSMETIC [Suspect]
     Active Substance: ONABOTULINUMTOXINA
     Indication: SKIN WRINKLING
     Dosage: 15 UNITS, SINGLE
     Route: 030
     Dates: start: 20140829, end: 20140829

REACTIONS (12)
  - Off label use [Unknown]
  - Erythema [Recovered/Resolved]
  - Eye discharge [Recovered/Resolved]
  - Sinus headache [Recovered/Resolved]
  - Ocular hyperaemia [Recovered/Resolved]
  - Procedural headache [Recovered/Resolved]
  - Rhinorrhoea [Recovered/Resolved]
  - Feeling abnormal [Recovered/Resolved]
  - Foreign body in eye [Not Recovered/Not Resolved]
  - Malaise [Recovered/Resolved]
  - Rash [Not Recovered/Not Resolved]
  - Swelling [Recovered/Resolved]
